FAERS Safety Report 5217561-5 (Version None)
Quarter: 2007Q1

REPORT INFORMATION
  Report Type: 
  Country: None (occurrence: None)
  Receive Date: 20070124
  Receipt Date: 20060329
  Transmission Date: 20070707
  Serious: No
  Sender: FDA-Public Use
  Company Number: US-GLAXOSMITHKLINE-A0599550A

PATIENT
  Age: 34 Year
  Sex: Female

DRUGS (1)
  1. PAXIL CR [Suspect]
     Indication: DEPRESSION
     Dosage: 25MG FOUR TIMES PER DAY
     Route: 048
     Dates: start: 20060308, end: 20060316

REACTIONS (8)
  - ACCIDENTAL OVERDOSE [None]
  - DIZZINESS [None]
  - HEADACHE [None]
  - MEDICATION ERROR [None]
  - MEMORY IMPAIRMENT [None]
  - MUSCLE SPASMS [None]
  - MUSCULAR WEAKNESS [None]
  - SKIN TIGHTNESS [None]
